FAERS Safety Report 26102898 (Version 1)
Quarter: 2025Q4

REPORT INFORMATION
  Report Type: Spontaneous
  Country: US (occurrence: US)
  Receive Date: 20251128
  Receipt Date: 20251128
  Transmission Date: 20260119
  Serious: No
  Sender: DAIICHI
  Company Number: US-DAIICHI SANKYO, INC.-DS-2025-178710-USAA

PATIENT
  Sex: Female

DRUGS (4)
  1. DATROWAY [Suspect]
     Active Substance: DATOPOTAMAB DERUXTECAN-DLNK
     Indication: Non-small cell lung cancer metastatic
     Dosage: UNK
     Route: 065
  2. DATROWAY [Suspect]
     Active Substance: DATOPOTAMAB DERUXTECAN-DLNK
     Indication: Non-small cell lung cancer stage IV
     Dosage: UNK
     Route: 065
  3. DATROWAY [Suspect]
     Active Substance: DATOPOTAMAB DERUXTECAN-DLNK
     Dosage: UNK
     Route: 065
  4. DATROWAY [Suspect]
     Active Substance: DATOPOTAMAB DERUXTECAN-DLNK
     Dosage: UNK
     Route: 065
     Dates: start: 20251112

REACTIONS (3)
  - Dry skin [Not Recovered/Not Resolved]
  - Skin exfoliation [Not Recovered/Not Resolved]
  - General physical health deterioration [Not Recovered/Not Resolved]
